FAERS Safety Report 8222030-4 (Version None)
Quarter: 2012Q1

REPORT INFORMATION
  Report Type: 
  Country: None (occurrence: None)
  Receive Date: 20120320
  Receipt Date: 20120305
  Transmission Date: 20120608
  Serious: Yes (Hospitalization)
  Sender: FDA-Public Use
  Company Number: DE-JUTA GMBH-2012-04618

PATIENT
  Age: 55 Year
  Sex: Female

DRUGS (4)
  1. AZATHIOPRINE [Suspect]
     Indication: COLITIS ULCERATIVE
     Dosage: 2.5 MG/KG/DAY
     Route: 048
  2. PREDNISOLONE [Suspect]
     Dosage: 1 MG/KG, DAILY
     Route: 065
  3. PREDNISOLONE [Suspect]
     Indication: COLITIS ULCERATIVE
     Dosage: 2 MG/KG, DAILY
     Route: 065
  4. CYCLOSPORINE [Suspect]
     Indication: COLITIS ULCERATIVE

REACTIONS (4)
  - BRONCHOPULMONARY ASPERGILLOSIS [None]
  - HERPES ZOSTER DISSEMINATED [None]
  - MEGACOLON [None]
  - GASTROINTESTINAL BACTERIAL INFECTION [None]
